FAERS Safety Report 15017935 (Version 2)
Quarter: 2018Q2

REPORT INFORMATION
  Report Type: Spontaneous
  Country: PT (occurrence: PT)
  Receive Date: 20180615
  Receipt Date: 20180628
  Transmission Date: 20180711
  Serious: Yes (Other)
  Sender: FDA-Public Use
  Company Number: PT-JUBILANT CADISTA PHARMACEUTICALS-2018JUB00216

PATIENT
  Age: 47 Year
  Sex: Male

DRUGS (1)
  1. OLANZAPINE. [Suspect]
     Active Substance: OLANZAPINE
     Indication: DEPRESSION
     Route: 065

REACTIONS (2)
  - Xanthoma [Recovered/Resolved]
  - Dyslipidaemia [Recovered/Resolved]
